FAERS Safety Report 5670110-X (Version None)
Quarter: 2008Q1

REPORT INFORMATION
  Report Type: 
  Country: None (occurrence: None)
  Receive Date: 20080312
  Receipt Date: 20080306
  Transmission Date: 20080703
  Serious: Yes (Life-Threatening)
  Sender: FDA-Public Use
  Company Number: 2008020036

PATIENT
  Sex: Male

DRUGS (2)
  1. VOLUVEN [Suspect]
     Indication: SURGERY
     Dosage: INTRAVENOUS
     Route: 042
     Dates: start: 20070101, end: 20070101
  2. CEFUROXIME (CEFUROXIME) (CEFUROXIME) [Concomitant]

REACTIONS (1)
  - ANAPHYLACTIC REACTION [None]
